FAERS Safety Report 7966714-1 (Version None)
Quarter: 2011Q4

REPORT INFORMATION
  Report Type: 
  Country: None (occurrence: None)
  Receive Date: 20111209
  Receipt Date: 20111205
  Transmission Date: 20120403
  Serious: No
  Sender: FDA-Public Use
  Company Number: US-BIOGENIDEC-2011BI046052

PATIENT
  Sex: Male

DRUGS (1)
  1. TYSABRI [Suspect]
     Indication: MULTIPLE SCLEROSIS
     Route: 042
     Dates: start: 20100630

REACTIONS (6)
  - DYSSTASIA [None]
  - ABASIA [None]
  - FEELING ABNORMAL [None]
  - FALL [None]
  - FATIGUE [None]
  - DRUG INEFFECTIVE [None]
